FAERS Safety Report 20085546 (Version 1)
Quarter: 2021Q4

REPORT INFORMATION
  Report Type: Spontaneous
  Country: US (occurrence: None)
  Receive Date: 20211117
  Receipt Date: 20211117
  Transmission Date: 20220303
  Serious: No
  Sender: FDA-Public Use
  Company Number: None

PATIENT
  Age: 58 Year
  Sex: Female
  Weight: 65.25 kg

DRUGS (10)
  1. TRELEGY ELLIPTA [Suspect]
     Active Substance: FLUTICASONE FUROATE\UMECLIDINIUM BROMIDE\VILANTEROL TRIFENATATE
     Indication: Smoking cessation therapy
     Dosage: OTHER QUANTITY : 1 INHALATION(S);?FREQUENCY : DAILY;?
     Route: 055
     Dates: start: 20211104, end: 20211104
  2. ATORVASTATIN [Concomitant]
     Active Substance: ATORVASTATIN
  3. LOSARTAN [Concomitant]
     Active Substance: LOSARTAN
  4. EZETIMBE/HYDROCHLOROTHIAZIDE [Concomitant]
  5. FISH OILS [Concomitant]
  6. PANTOPRAZOLE [Concomitant]
     Active Substance: PANTOPRAZOLE
  7. ASPIRIN [Concomitant]
     Active Substance: ASPIRIN
  8. VITAMIN B6 [Concomitant]
     Active Substance: PYRIDOXINE HYDROCHLORIDE
  9. VITAMIN B COMPLEX [Concomitant]
     Active Substance: CYANOCOBALAMIN\DEXPANTHENOL\NIACINAMIDE\PYRIDOXINE HYDROCHLORIDE\RIBOFLAVIN 5^-PHOSPHATE SODIUM\THIA
  10. VITAMIN D [Concomitant]
     Active Substance: VITAMIN D NOS

REACTIONS (3)
  - Cough [None]
  - Wheezing [None]
  - Chest discomfort [None]

NARRATIVE: CASE EVENT DATE: 20211104
